FAERS Safety Report 7443818-3 (Version None)
Quarter: 2011Q2

REPORT INFORMATION
  Report Type: 
  Country: None (occurrence: None)
  Receive Date: 20110428
  Receipt Date: 20110427
  Transmission Date: 20111010
  Serious: Yes (Other)
  Sender: FDA-Public Use
  Company Number: JP-BAYER-2011-036054

PATIENT
  Sex: Male

DRUGS (3)
  1. NEXAVAR [Suspect]
     Indication: HEPATIC NEOPLASM MALIGNANT
     Dosage: DAILY DOSE 400 MG
     Route: 048
     Dates: start: 20110415, end: 20110421
  2. NEXAVAR [Suspect]
     Dosage: DAILY DOSE 400 MG
     Route: 048
     Dates: start: 20110427
  3. NEXAVAR [Suspect]
     Dosage: DAILY DOSE 600 MG
     Route: 048
     Dates: start: 20110422, end: 20110426

REACTIONS (1)
  - HEPATIC ENCEPHALOPATHY [None]
